FAERS Safety Report 9398447 (Version 1)
Quarter: 2013Q3

REPORT INFORMATION
  Report Type: Spontaneous
  Country: US (occurrence: US)
  Receive Date: 20130712
  Receipt Date: 20130712
  Transmission Date: 20140515
  Serious: No
  Sender: FDA-Public Use
  Company Number: US-GLAXOSMITHKLINE-A1022868A

PATIENT
  Age: 61 Year
  Sex: Female

DRUGS (4)
  1. FLOVENT [Suspect]
     Indication: ASTHMA
     Dosage: 4PUFF TWICE PER DAY
     Route: 055
  2. ADVAIR [Concomitant]
  3. SUDAFED [Concomitant]
  4. BENADRYL [Concomitant]

REACTIONS (1)
  - Overdose [Unknown]
